FAERS Safety Report 18417721 (Version 1)
Quarter: 2020Q4

REPORT INFORMATION
  Report Type: Spontaneous
  Country: US (occurrence: US)
  Receive Date: 20201022
  Receipt Date: 20201022
  Transmission Date: 20210114
  Serious: No
  Sender: FDA-Public Use
  Company Number: US-PFIZER INC-2019279936

PATIENT
  Age: 73 Year
  Sex: Female
  Weight: 79.37 kg

DRUGS (3)
  1. DILANTIN [Suspect]
     Active Substance: PHENYTOIN
     Dosage: 100 MG, 3X/DAY (TAKE 1 CAPSULE (100 MG) BY MOUTH 3 TIMES DAILY)
     Route: 048
     Dates: start: 20200818
  2. DILANTIN [Suspect]
     Active Substance: PHENYTOIN
     Dosage: 100 MG, (TAKE 2 CAPSULE X 2 DAYS THEN THE 3RD DAY 3 CAPSULE FOR 2 DAYS ALTERNATING)
     Dates: start: 20200124
  3. DILANTIN [Suspect]
     Active Substance: PHENYTOIN
     Dosage: 100 MG( 2 CAPSULE X 2 DAYS THEN THE 3RD DAY 3 CAPS FOR 2 DAYS ALTERNATING/ 90 DAY SUPPLY)
     Dates: start: 20190619

REACTIONS (1)
  - Drug level decreased [Unknown]
